FAERS Safety Report 6959419-7 (Version None)
Quarter: 2010Q3

REPORT INFORMATION
  Report Type: 
  Country: None (occurrence: None)
  Receive Date: 20100831
  Receipt Date: 20100831
  Transmission Date: 20110219
  Serious: Yes (Life-Threatening, Hospitalization)
  Sender: FDA-Public Use
  Company Number: None

PATIENT
  Age: 62 Year
  Sex: Male
  Weight: 122.4712 kg

DRUGS (2)
  1. OCTAGAM [Suspect]
     Indication: CHRONIC OBSTRUCTIVE PULMONARY DISEASE
     Dosage: 120 GRAMS PRN IV DRIP
     Route: 041
     Dates: start: 20050101, end: 20100602
  2. OCTAGAM [Suspect]
     Indication: CHRONIC OBSTRUCTIVE PULMONARY DISEASE
     Dosage: 120 GRAMS PRN IV DRIP
     Route: 041
     Dates: start: 20100825, end: 20100825

REACTIONS (7)
  - ASTHMA [None]
  - BLOOD PRESSURE DECREASED [None]
  - DEEP VEIN THROMBOSIS [None]
  - HEART RATE DECREASED [None]
  - LOSS OF CONSCIOUSNESS [None]
  - PRODUCT QUALITY ISSUE [None]
  - PULMONARY EMBOLISM [None]
